FAERS Safety Report 4355964-1 (Version None)
Quarter: 2004Q2

REPORT INFORMATION
  Report Type: 
  Country: None (occurrence: None)
  Receive Date: 20040505
  Receipt Date: 20040422
  Transmission Date: 20050107
  Serious: Yes (Hospitalization)
  Sender: FDA-Public Use
  Company Number: HQWYE578323APR04

PATIENT
  Sex: Female
  Weight: 89.89 kg

DRUGS (5)
  1. EFFEXOR XR [Suspect]
     Indication: POSTPARTUM DEPRESSION
     Dosage: 75 MG 1X PER 1 DAY, ORAL
     Route: 048
     Dates: start: 20030101
  2. AZMACORT [Concomitant]
  3. MAXAIR [Concomitant]
  4. PROTONIX [Concomitant]
  5. ZANTAC [Concomitant]

REACTIONS (12)
  - AGITATION [None]
  - CONVULSION [None]
  - DYSKINESIA [None]
  - EYE MOVEMENT DISORDER [None]
  - MIGRAINE [None]
  - MUSCULOSKELETAL STIFFNESS [None]
  - NERVOUSNESS [None]
  - NEURALGIA [None]
  - REGURGITATION OF FOOD [None]
  - TONGUE SPASM [None]
  - VERTIGO POSITIONAL [None]
  - VOMITING [None]
